FAERS Safety Report 8729631 (Version 2)
Quarter: 2015Q2

REPORT INFORMATION
  Report Type: Report from Study
  Country: US (occurrence: US)
  Receive Date: 20120817
  Receipt Date: 20150626
  Transmission Date: 20150821
  Serious: Yes (Other)
  Sender: FDA-Public Use
  Company Number: US-ROCHE-1099335

PATIENT
  Age: 58 Year
  Sex: Male

DRUGS (1)
  1. ACTIVASE [Suspect]
     Active Substance: ALTEPLASE
     Indication: ACUTE MYOCARDIAL INFARCTION
     Route: 065
     Dates: start: 19931206

REACTIONS (4)
  - Hypoaesthesia [Unknown]
  - Aortic aneurysm [Unknown]
  - Pain in extremity [Unknown]
  - Iliac artery occlusion [Unknown]
